FAERS Safety Report 25132570 (Version 3)
Quarter: 2025Q2

REPORT INFORMATION
  Report Type: Spontaneous
  Country: US (occurrence: US)
  Receive Date: 20250328
  Receipt Date: 20250606
  Transmission Date: 20250717
  Serious: Yes (Hospitalization, Other)
  Sender: SANOFI AVENTIS
  Company Number: US-SANOFI-02456333

PATIENT
  Age: 54 Year
  Sex: Male
  Weight: 131.82 kg

DRUGS (14)
  1. DUPIXENT [Suspect]
     Active Substance: DUPILUMAB
     Indication: Asthma
     Dosage: 300 MG, QOW
     Route: 058
     Dates: start: 202408
  2. NUCALA [Suspect]
     Active Substance: MEPOLIZUMAB
  3. TRELEGY ELLIPTA [Concomitant]
     Active Substance: FLUTICASONE FUROATE\UMECLIDINIUM BROMIDE\VILANTEROL TRIFENATATE
  4. XOPENEX [Concomitant]
     Active Substance: LEVALBUTEROL HYDROCHLORIDE
  5. SINGULAIR [Concomitant]
     Active Substance: MONTELUKAST SODIUM
  6. FLUTICASONE [Concomitant]
     Active Substance: FLUTICASONE
  7. OCEAN SALINE NASAL SPRAY [Concomitant]
     Active Substance: SODIUM CHLORIDE
  8. OMEPRAZOLE [Concomitant]
     Active Substance: OMEPRAZOLE
  9. ALLEGRA ALLERGY [Concomitant]
     Active Substance: FEXOFENADINE HYDROCHLORIDE
  10. FLONASE ALLERGY RELIEF [Concomitant]
     Active Substance: FLUTICASONE PROPIONATE
  11. ALBUTEROL SULFATE [Concomitant]
     Active Substance: ALBUTEROL SULFATE
  12. OXYGEN [Concomitant]
     Active Substance: OXYGEN
  13. PEPCID [Concomitant]
     Active Substance: FAMOTIDINE
  14. MONTELUKAST SODIUM [Concomitant]
     Active Substance: MONTELUKAST SODIUM

REACTIONS (12)
  - Transient ischaemic attack [Unknown]
  - Dyspnoea [Unknown]
  - Chest pain [Unknown]
  - Asthenia [Unknown]
  - Feeling cold [Unknown]
  - Dizziness postural [Unknown]
  - Dry mouth [Unknown]
  - Dry throat [Unknown]
  - Balance disorder [Recovered/Resolved]
  - Pruritus [Unknown]
  - Headache [Unknown]
  - Rash [Unknown]
